FAERS Safety Report 26186777 (Version 1)
Quarter: 2025Q4

REPORT INFORMATION
  Report Type: Spontaneous
  Country: EU (occurrence: EU)
  Receive Date: 20251222
  Receipt Date: 20251222
  Transmission Date: 20260118
  Serious: Yes (Other)
  Sender: AMGEN
  Company Number: EU-AMGEN-POLSP2025248529

PATIENT
  Age: 77 Year
  Sex: Male

DRUGS (2)
  1. VECTIBIX [Suspect]
     Active Substance: PANITUMUMAB
     Indication: Adenocarcinoma metastatic
     Dosage: UNK, (1 ST CYCLE)
     Route: 065
     Dates: start: 20250326, end: 2025
  2. VECTIBIX [Suspect]
     Active Substance: PANITUMUMAB
     Dosage: UNK, REDUCED DOSE (60%)
     Route: 065
     Dates: start: 20250821

REACTIONS (4)
  - Adenocarcinoma metastatic [Recovering/Resolving]
  - Off label use [Unknown]
  - Rash pustular [Recovering/Resolving]
  - Therapy partial responder [Unknown]

NARRATIVE: CASE EVENT DATE: 20250326
